FAERS Safety Report 4373388-8 (Version None)
Quarter: 2004Q2

REPORT INFORMATION
  Report Type: 
  Country: None (occurrence: None)
  Receive Date: 20040603
  Receipt Date: 20031028
  Transmission Date: 20050107
  Serious: Yes (Death)
  Sender: FDA-Public Use
  Company Number: KII-2003-0010778

PATIENT
  Age: 71 Year
  Sex: Male

DRUGS (3)
  1. MORPHINE SULFATE [Suspect]
  2. OXYCODONE HCL [Suspect]
  3. HEROIN (DIAMORPHINE) [Suspect]

REACTIONS (7)
  - CONDITION AGGRAVATED [None]
  - DRUG ABUSER [None]
  - DRUG TOLERANCE [None]
  - DRUG TOXICITY [None]
  - HEPATIC CANCER METASTATIC [None]
  - METABOLIC DISORDER [None]
  - METASTASES TO LUNG [None]
